FAERS Safety Report 6195702-3 (Version None)
Quarter: 2009Q2

REPORT INFORMATION
  Report Type: 
  Country: None (occurrence: None)
  Receive Date: 20090519
  Receipt Date: 20090507
  Transmission Date: 20091009
  Serious: Yes (Hospitalization)
  Sender: FDA-Public Use
  Company Number: FR-ELI_LILLY_AND_COMPANY-FR200903002929

PATIENT
  Age: 61 Year
  Sex: Female
  Weight: 67 kg

DRUGS (3)
  1. FORTEO [Suspect]
     Indication: OSTEOPOROSIS
     Dosage: 20 UG, DAILY (1/D)
     Route: 058
     Dates: start: 20080105
  2. GARDENAL [Concomitant]
     Dosage: UNK, UNKNOWN
     Route: 065
  3. OSTRAM D3 [Concomitant]
     Indication: OSTEOPOROSIS
     Dosage: 1 D/F, DAILY (1/D)
     Route: 048
     Dates: start: 20020101

REACTIONS (10)
  - ANAEMIA [None]
  - DIVERTICULUM [None]
  - FUNGAL INFECTION [None]
  - HAEMANGIOMA [None]
  - HEADACHE [None]
  - HIATUS HERNIA [None]
  - HYPERTHERMIA [None]
  - MELAENA [None]
  - PUNCTURE SITE INFECTION [None]
  - WEIGHT DECREASED [None]
